FAERS Safety Report 24285384 (Version 1)
Quarter: 2024Q3

REPORT INFORMATION
  Report Type: Spontaneous
  Country: JP (occurrence: JP)
  Receive Date: 20240905
  Receipt Date: 20240905
  Transmission Date: 20241017
  Serious: Yes (Life-Threatening, Other)
  Sender: Phathom Pharmaceuticals
  Company Number: JP-PHATHOM PHARMACEUTICALS INC.-2024PHT00785

PATIENT
  Age: 54 Year
  Sex: Male
  Weight: 84.7 kg

DRUGS (8)
  1. VONOPRAZAN FUMARATE [Suspect]
     Active Substance: VONOPRAZAN FUMARATE
     Indication: Product used for unknown indication
     Dosage: 20 MG, 1X/DAY
     Route: 048
     Dates: start: 201912, end: 20191226
  2. PLAVIX [Suspect]
     Active Substance: CLOPIDOGREL BISULFATE
     Indication: Product used for unknown indication
     Dosage: 75 MG, 1X/DAY
     Route: 048
  3. URSO [Concomitant]
     Active Substance: URSODIOL
     Dosage: UNK
  4. METGLUCO [Concomitant]
     Active Substance: METFORMIN HYDROCHLORIDE
     Dosage: UNK
  5. LINAGLIPTIN [Concomitant]
     Active Substance: LINAGLIPTIN
     Dosage: UNK
  6. AMLODIPINE BESYLATE\IRBESARTAN [Concomitant]
     Active Substance: AMLODIPINE BESYLATE\IRBESARTAN
     Dosage: UNK
  7. TEPRENONE [Concomitant]
     Active Substance: TEPRENONE
     Dosage: UNK
  8. BIO-THREE [Concomitant]
     Active Substance: HERBALS
     Dosage: UNK

REACTIONS (4)
  - Polyp [Recovered/Resolved]
  - Blood gastrin increased [Recovered/Resolved]
  - Haemorrhage [Recovered/Resolved]
  - Off label use [Recovered/Resolved]

NARRATIVE: CASE EVENT DATE: 20191201
